FAERS Safety Report 13503701 (Version 2)
Quarter: 2017Q2

REPORT INFORMATION
  Report Type: Spontaneous
  Country: BR (occurrence: BR)
  Receive Date: 20170502
  Receipt Date: 20170602
  Transmission Date: 20170830
  Serious: Yes (Hospitalization, Other)
  Sender: FDA-Public Use
  Company Number: BR-009507513-1704BRA013015

PATIENT
  Sex: Female
  Weight: 97 kg

DRUGS (1)
  1. NUVARING [Suspect]
     Active Substance: ETHINYL ESTRADIOL\ETONOGESTREL
     Indication: CONTRACEPTION
     Dosage: 1 RING, 3 WEEKS OF USE AND 1 WEEK OF CONTRACEPTIVE-FREE INTERVAL
     Route: 067
     Dates: start: 2011, end: 2013

REACTIONS (6)
  - Pyelonephritis [Unknown]
  - Weight decreased [Recovered/Resolved]
  - Weight decreased [Unknown]
  - Metabolic surgery [Recovered/Resolved]
  - Vulvovaginal candidiasis [Recovered/Resolved]
  - Weight increased [Unknown]

NARRATIVE: CASE EVENT DATE: 2013
